FAERS Safety Report 17891171 (Version 1)
Quarter: 2020Q2

REPORT INFORMATION
  Report Type: Spontaneous
  Country: US (occurrence: US)
  Receive Date: 20200612
  Receipt Date: 20200612
  Transmission Date: 20200714
  Serious: No
  Sender: FDA-Public Use
  Company Number: US-PERRIGO-19US012778

PATIENT
  Age: 63 Year
  Sex: Female

DRUGS (1)
  1. MINOXIDIL. [Suspect]
     Active Substance: MINOXIDIL
     Indication: ALOPECIA
     Dosage: 1/2 CAPFUL, QD
     Route: 061
     Dates: start: 201905, end: 20191016

REACTIONS (7)
  - Hypertrichosis [Recovering/Resolving]
  - Application site pruritus [Recovered/Resolved]
  - Application site pain [Recovering/Resolving]
  - Application site anaesthesia [Recovering/Resolving]
  - Application site dryness [Recovered/Resolved]
  - Application site erythema [Recovering/Resolving]
  - Headache [Recovered/Resolved]

NARRATIVE: CASE EVENT DATE: 201905
